FAERS Safety Report 8353147-1 (Version None)
Quarter: 2012Q2

REPORT INFORMATION
  Report Type: 
  Country: None (occurrence: None)
  Receive Date: 20120511
  Receipt Date: 20120508
  Transmission Date: 20120825
  Serious: Yes (Other)
  Sender: FDA-Public Use
  Company Number: US-PFIZER INC-2012053159

PATIENT
  Sex: Male
  Weight: 73.923 kg

DRUGS (11)
  1. CHANTIX [Suspect]
     Indication: SMOKING CESSATION THERAPY
     Dosage: 0.5 MG, 1X/DAY
     Route: 048
     Dates: start: 20111001
  2. LYRICA [Suspect]
     Indication: PAIN
     Dosage: 50 MG, 3X/DAY
     Route: 048
  3. LYRICA [Suspect]
     Dosage: 100 MG, 3X/DAY
  4. THORAZINE [Concomitant]
     Dosage: 4 MG, 3X/DAY
  5. LYRICA [Suspect]
     Dosage: UNK
     Route: 048
  6. CYMBALTA [Concomitant]
     Dosage: UNK
  7. LYRICA [Suspect]
     Indication: NEUROPATHY PERIPHERAL
     Dosage: 200 MG, 3X/DAY
     Route: 048
  8. OXYCODONE [Concomitant]
     Dosage: 5 MG, 4X/DAY
  9. CLONAZEPAM [Concomitant]
     Indication: ANXIETY
     Dosage: UNK, AS NEEDED
  10. OMEPRAZOLE [Concomitant]
     Dosage: UNK, 2X/DAY
  11. CHANTIX [Suspect]
     Dosage: UNK
     Route: 048
     Dates: end: 20120101

REACTIONS (24)
  - DIABETES MELLITUS [None]
  - ASTHMA [None]
  - AMNESIA [None]
  - PAIN [None]
  - MIGRAINE [None]
  - LUNG INFECTION [None]
  - PROSTATOMEGALY [None]
  - GASTROOESOPHAGEAL REFLUX DISEASE [None]
  - SCAR [None]
  - VISION BLURRED [None]
  - DYSPNOEA [None]
  - EMPHYSEMA [None]
  - FIBROMYALGIA [None]
  - HYPERTENSION [None]
  - OEDEMA PERIPHERAL [None]
  - ASTHENIA [None]
  - CHRONIC OBSTRUCTIVE PULMONARY DISEASE [None]
  - NERVE INJURY [None]
  - JOINT SWELLING [None]
  - SURGERY [None]
  - URINARY TRACT INFECTION [None]
  - BONE PAIN [None]
  - SEDATION [None]
  - HEADACHE [None]
